FAERS Safety Report 5572756-6 (Version None)
Quarter: 2007Q4

REPORT INFORMATION
  Report Type: 
  Country: None (occurrence: None)
  Receive Date: 20071222
  Receipt Date: 20071213
  Transmission Date: 20080405
  Serious: Yes (Hospitalization)
  Sender: FDA-Public Use
  Company Number: US-PFIZER INC-2005156747

PATIENT
  Sex: Male
  Weight: 68.9 kg

DRUGS (1)
  1. SUTENT [Suspect]
     Indication: GASTROINTESTINAL STROMAL TUMOUR
     Route: 048

REACTIONS (1)
  - INTESTINAL OBSTRUCTION [None]
